FAERS Safety Report 4402284-2 (Version None)
Quarter: 2004Q3

REPORT INFORMATION
  Report Type: 
  Country: None (occurrence: None)
  Receive Date: 20040720
  Receipt Date: 20040401
  Transmission Date: 20050211
  Serious: Yes (Hospitalization)
  Sender: FDA-Public Use
  Company Number: JP-GLAXOSMITHKLINE-B0329119A

PATIENT
  Age: 74 Year
  Sex: Male

DRUGS (12)
  1. CEFTAZIDIME [Suspect]
     Route: 042
     Dates: start: 20020429, end: 20020812
  2. AMIKACIN [Suspect]
     Route: 065
     Dates: start: 20020101, end: 20020101
  3. VANCOMYCIN [Concomitant]
     Route: 048
     Dates: start: 20020101
  4. METRONIDAZOLE [Concomitant]
     Route: 065
     Dates: start: 20020101
  5. ETOPOSIDE [Concomitant]
     Route: 065
     Dates: start: 20020501, end: 20020801
  6. MITOXANTRONE [Concomitant]
     Route: 065
     Dates: start: 20020501, end: 20020801
  7. PREDNISOLONE [Concomitant]
     Route: 065
     Dates: start: 20020501
  8. CYCLOPHOSPHAMIDE [Concomitant]
     Route: 065
     Dates: start: 20020806
  9. ADRIAMYCIN PFS [Concomitant]
     Route: 065
     Dates: start: 20020806
  10. VINCRISTINE [Concomitant]
     Route: 065
     Dates: start: 20020806
  11. LACTOMIN [Concomitant]
     Route: 065
     Dates: start: 20020101
  12. FOSFOMYCIN [Concomitant]
     Route: 065

REACTIONS (9)
  - ASCITES [None]
  - BACTERIA STOOL IDENTIFIED [None]
  - CLOSTRIDIUM COLITIS [None]
  - DIARRHOEA [None]
  - GASTROENTERITIS CLOSTRIDIAL [None]
  - HYPOVOLAEMIA [None]
  - PLEURAL EFFUSION [None]
  - PYREXIA [None]
  - RESPIRATORY DISTRESS [None]
